FAERS Safety Report 12257121 (Version 1)
Quarter: 2016Q2

REPORT INFORMATION
  Report Type: Spontaneous
  Country: None (occurrence: None)
  Receive Date: 20160411
  Receipt Date: 20160411
  Transmission Date: 20160815
  Serious: Yes (Other)
  Sender: FDA-Public Use
  Company Number: None

PATIENT
  Age: 27 Year
  Sex: Female
  Weight: 49.8 kg

DRUGS (2)
  1. ISOVUE 300 [Suspect]
     Active Substance: IOPAMIDOL
     Indication: VON HIPPEL-LINDAU DISEASE
     Dosage: 90 ML X 1 IVP OVER 20 SECONDS
     Dates: start: 20151026
  2. ISOVUE 300 [Suspect]
     Active Substance: IOPAMIDOL
     Indication: SCAN WITH CONTRAST
     Dosage: 90 ML X 1 IVP OVER 20 SECONDS
     Dates: start: 20151026

REACTIONS (4)
  - Contrast media reaction [None]
  - Pruritus [None]
  - Pharyngeal disorder [None]
  - Cough [None]

NARRATIVE: CASE EVENT DATE: 20151026
